FAERS Safety Report 9759929 (Version 2)
Quarter: 2013Q4

REPORT INFORMATION
  Report Type: Spontaneous
  Country: US (occurrence: US)
  Receive Date: 20131216
  Receipt Date: 20131221
  Transmission Date: 20140711
  Serious: Yes (Other)
  Sender: FDA-Public Use
  Company Number: US-BAXTER-2013BAX049773

PATIENT
  Age: 71 Year
  Sex: Female

DRUGS (3)
  1. DIANEAL LOW CALCIUM [Suspect]
     Indication: RENAL FAILURE
     Route: 033
     Dates: start: 201310
  2. DIANEAL LOW CALCIUM [Suspect]
     Indication: RENAL FAILURE
     Route: 033
     Dates: start: 201310
  3. LANTUS [Suspect]
     Indication: DIABETES MELLITUS
     Route: 058

REACTIONS (5)
  - Blood pressure increased [Recovered/Resolved]
  - Blood glucose decreased [Unknown]
  - Blood glucose increased [Recovered/Resolved]
  - Skin tightness [Recovered/Resolved]
  - Headache [Unknown]
